FAERS Safety Report 12147322 (Version 1)
Quarter: 2016Q1

REPORT INFORMATION
  Report Type: Report from Study
  Country: ES (occurrence: ES)
  Receive Date: 20160304
  Receipt Date: 20160304
  Transmission Date: 20160526
  Serious: Yes (Life-Threatening)
  Sender: FDA-Public Use
  Company Number: ES-BAYER-2016-034048

PATIENT
  Age: 76 Year
  Sex: Male

DRUGS (6)
  1. METFORMIN [Concomitant]
     Active Substance: METFORMIN HYDROCHLORIDE
     Indication: DIABETES MELLITUS
     Dosage: UNK
     Route: 048
     Dates: end: 20150314
  2. FUROSEMIDA [Interacting]
     Active Substance: FUROSEMIDE
     Indication: OEDEMA
     Dosage: UNK
     Route: 065
     Dates: start: 201503, end: 20150314
  3. ADIRO 300 MG GASTRO-RESISTANT TABLETS, 30 TABLETS [Suspect]
     Active Substance: ASPIRIN
     Indication: PROPHYLAXIS
     Dosage: UNK
     Route: 048
     Dates: end: 20150314
  4. ENALAPRIL [Interacting]
     Active Substance: ENALAPRIL
     Indication: HYPERTENSION
     Dosage: UNK
     Route: 048
     Dates: end: 20150314
  5. NOVONORM [Concomitant]
     Active Substance: REPAGLINIDE
     Indication: DIABETES MELLITUS
     Dosage: UNK
     Route: 048
     Dates: end: 20150314
  6. SECALIP [Concomitant]
     Active Substance: FENOFIBRATE
     Dosage: UNK
     Route: 048
     Dates: end: 20150314

REACTIONS (9)
  - Blood pH decreased [None]
  - Drug interaction [None]
  - Anion gap increased [None]
  - Blood sodium decreased [None]
  - Acute kidney injury [Recovered/Resolved]
  - Blood lactic acid increased [None]
  - Hyperkalaemia [Recovered/Resolved]
  - Atrioventricular block [Recovered/Resolved]
  - Dialysis [None]

NARRATIVE: CASE EVENT DATE: 20150314
